FAERS Safety Report 5685093-6 (Version None)
Quarter: 2008Q1

REPORT INFORMATION
  Report Type: 
  Country: None (occurrence: None)
  Receive Date: 20080328
  Receipt Date: 20080313
  Transmission Date: 20080703
  Serious: Yes (Death)
  Sender: FDA-Public Use
  Company Number: JP-GENENTECH-255607

PATIENT
  Sex: Male
  Weight: 48.98 kg

DRUGS (4)
  1. AVASTIN [Suspect]
     Indication: COLON CANCER
     Dosage: 200 MG, Q2W
     Route: 041
     Dates: start: 20080109, end: 20080109
  2. OXALIPLATIN [Suspect]
     Indication: COLON CANCER
     Dosage: UNK, UNK
     Route: 041
     Dates: start: 20080109, end: 20080109
  3. FLUOROURACIL [Suspect]
     Indication: COLON CANCER
     Dosage: UNK, UNK
     Route: 042
     Dates: start: 20080109, end: 20080101
  4. ISOVORIN [Suspect]
     Dosage: UNK, UNK
     Route: 041
     Dates: start: 20080109, end: 20080101

REACTIONS (1)
  - ACUTE RESPIRATORY DISTRESS SYNDROME [None]
